FAERS Safety Report 6754701-0 (Version None)
Quarter: 2010Q2

REPORT INFORMATION
  Report Type: 
  Country: None (occurrence: None)
  Receive Date: 20100603
  Receipt Date: 20100520
  Transmission Date: 20101027
  Serious: Yes (Hospitalization, Other)
  Sender: FDA-Public Use
  Company Number: ES-GENENTECH-301945

PATIENT
  Age: 48 Year
  Sex: Female

DRUGS (2)
  1. XOLAIR [Suspect]
     Indication: ASTHMA
     Dosage: UNK
     Route: 058
     Dates: start: 20091201, end: 20100413
  2. CORTICOSTEROIDS (UNK INGREDIENTS) [Concomitant]
     Indication: ASTHMA
     Dosage: UNK

REACTIONS (3)
  - ARTHRALGIA [None]
  - DERMATITIS [None]
  - PURPURA [None]
